FAERS Safety Report 9039085 (Version 2)
Quarter: 2013Q2

REPORT INFORMATION
  Report Type: Spontaneous
  Country: US (occurrence: None)
  Receive Date: 20120525
  Receipt Date: 20120827
  Transmission Date: 20140414
  Serious: Yes (Other)
  Sender: FDA-Public Use
  Company Number: 346850

PATIENT
  Age: 50 Year
  Sex: Female
  Weight: 83.9 kg

DRUGS (7)
  1. VICTOZA (LIRAGLUTIDE) SOLUTION FOR INJECTION, 6MG/ML [Suspect]
     Indication: TYPE 2 DIABETES MELLITUS
     Route: 058
     Dates: start: 201112, end: 20120125
  2. LANTUS (INSULIN GLARGINE) [Concomitant]
  3. METFORMIN (METFORMIN) [Concomitant]
  4. LIPITOR (ATORVASTATIN CALCIUM) [Concomitant]
  5. LISINOPRIL (LISINOPRIL) [Concomitant]
  6. HYDROCHLOROTHIAZIDE (HYDROCHLOROTHIAZIDE) [Concomitant]
  7. DILTIAZEM [Concomitant]

REACTIONS (1)
  - Pancreatitis [None]
